FAERS Safety Report 9206572 (Version 2)
Quarter: 2013Q2

REPORT INFORMATION
  Report Type: Spontaneous
  Country: US (occurrence: US)
  Receive Date: 20130403
  Receipt Date: 20130517
  Transmission Date: 20140414
  Serious: Yes (Other)
  Sender: FDA-Public Use
  Company Number: US-PFIZER INC-2013103278

PATIENT
  Age: 63 Year
  Sex: Female

DRUGS (2)
  1. CELEBREX [Suspect]
     Indication: BACK PAIN
     Dosage: 200 MG, 2X/DAY
     Route: 048
  2. EFFEXOR XR [Suspect]
     Indication: BACK PAIN
     Dosage: 150 MG, 1X/DAY

REACTIONS (4)
  - Back pain [Unknown]
  - Accident at work [Unknown]
  - Back disorder [Unknown]
  - Arthropathy [Unknown]
